FAERS Safety Report 21588393 (Version 1)
Quarter: 2022Q4

REPORT INFORMATION
  Report Type: Spontaneous
  Country: US (occurrence: US)
  Receive Date: 20221114
  Receipt Date: 20221114
  Transmission Date: 20230113
  Serious: No
  Sender: FDA-Public Use
  Company Number: US-TAKEDA-2022TUS084469

PATIENT
  Sex: Male

DRUGS (1)
  1. LIVTENCITY [Suspect]
     Active Substance: MARIBAVIR
     Indication: Cytomegalovirus syndrome
     Dosage: 400 MILLIGRAM, BID
     Route: 048

REACTIONS (2)
  - Dyspepsia [Unknown]
  - Gastrooesophageal reflux disease [Unknown]
